FAERS Safety Report 25706367 (Version 1)
Quarter: 2025Q3

REPORT INFORMATION
  Report Type: Spontaneous
  Country: US (occurrence: None)
  Receive Date: 20250820
  Receipt Date: 20250820
  Transmission Date: 20251021
  Serious: Yes (Hospitalization)
  Sender: FDA-CTU
  Company Number: None

PATIENT
  Age: 70 Year
  Sex: Male
  Weight: 102.6 kg

DRUGS (1)
  1. DARATUMUMAB\HYALURONIDASE-FIHJ [Suspect]
     Active Substance: DARATUMUMAB\HYALURONIDASE-FIHJ

REACTIONS (8)
  - Pneumonitis [None]
  - Unresponsive to stimuli [None]
  - Dyspnoea [None]
  - Hypoxia [None]
  - Pneumonia [None]
  - Hyperthermia [None]
  - Blood lactic acid increased [None]
  - Lung opacity [None]

NARRATIVE: CASE EVENT DATE: 20250814
